FAERS Safety Report 11164804 (Version 1)
Quarter: 2015Q2

REPORT INFORMATION
  Report Type: Spontaneous
  Country: US (occurrence: US)
  Receive Date: 20150604
  Receipt Date: 20150604
  Transmission Date: 20150821
  Serious: No
  Sender: FDA-Public Use
  Company Number: US-TEVA-566441USA

PATIENT
  Age: 63 Year
  Sex: Female
  Weight: 81.72 kg

DRUGS (3)
  1. COPAXONE [Suspect]
     Active Substance: GLATIRAMER ACETATE
     Indication: MULTIPLE SCLEROSIS
     Dosage: UNKNOWN DOSE STRENGTH
     Dates: start: 1997
  2. NEURONTIN [Concomitant]
     Active Substance: GABAPENTIN
  3. RESTASIS [Concomitant]
     Active Substance: CYCLOSPORINE

REACTIONS (7)
  - Headache [Unknown]
  - Injection site pain [Unknown]
  - Adverse drug reaction [Unknown]
  - Injection site mass [Unknown]
  - Injection site induration [Unknown]
  - Fatigue [Unknown]
  - Injection site reaction [Unknown]

NARRATIVE: CASE EVENT DATE: 201410
